FAERS Safety Report 15356148 (Version 1)
Quarter: 2018Q3

REPORT INFORMATION
  Report Type: Spontaneous
  Country: US (occurrence: US)
  Receive Date: 20180830
  Receipt Date: 20180830
  Transmission Date: 20181010
  Serious: No
  Sender: FDA-Public Use
  Company Number: None

PATIENT
  Age: 43 Year
  Sex: Female
  Weight: 122.02 kg

DRUGS (1)
  1. CIMZIA [Suspect]
     Active Substance: CERTOLIZUMAB PEGOL
     Indication: RHEUMATOID ARTHRITIS
     Dosage: 400MG (2 SYRINGES) SUBCUTANEOUSLY ON DAY 1, 14, AND 28 AS DIRECTED?
     Route: 058
     Dates: start: 201805

REACTIONS (1)
  - Enterovirus infection [None]
